FAERS Safety Report 5360291-X (Version None)
Quarter: 2007Q2

REPORT INFORMATION
  Report Type: 
  Country: None (occurrence: None)
  Receive Date: 20070618
  Receipt Date: 20070613
  Transmission Date: 20071010
  Serious: Yes (Other)
  Sender: FDA-Public Use
  Company Number: JP-BRISTOL-MYERS SQUIBB COMPANY-13815576

PATIENT
  Sex: Female

DRUGS (2)
  1. PARAPLATIN [Suspect]
     Indication: OVARIAN CANCER
     Route: 041
     Dates: start: 20070606, end: 20070606
  2. PACLITAXEL [Concomitant]
     Indication: OVARIAN CANCER
     Route: 041
     Dates: start: 20070606, end: 20070606

REACTIONS (1)
  - INAPPROPRIATE ANTIDIURETIC HORMONE SECRETION [None]
